FAERS Safety Report 6087927-2 (Version None)
Quarter: 2009Q1

REPORT INFORMATION
  Report Type: 
  Country: None (occurrence: None)
  Receive Date: 20090218
  Receipt Date: 20090218
  Transmission Date: 20090719
  Serious: Yes (Hospitalization)
  Sender: FDA-Public Use
  Company Number: None

PATIENT
  Age: 79 Year
  Sex: Male
  Weight: 98.8842 kg

DRUGS (12)
  1. ALEMTUZUMAB 30MG BAYER [Suspect]
     Indication: CHRONIC LYMPHOCYTIC LEUKAEMIA
     Dosage: 30MG 3 TIMES PER WEEK SQ
     Route: 058
     Dates: start: 20090202, end: 20090216
  2. ACYCLOVIR SODIUM [Concomitant]
  3. ALLOPURINOL [Concomitant]
  4. ASPIRIN [Concomitant]
  5. AVANDIA [Concomitant]
  6. BACTRIM DS [Concomitant]
  7. FLUCONAZOLE [Concomitant]
  8. GLYBURIDE [Concomitant]
  9. IMODIUM A-D [Concomitant]
  10. LOPID [Concomitant]
  11. METFORMIN [Concomitant]
  12. PRILOSEC [Concomitant]

REACTIONS (3)
  - HYPERGLYCAEMIA [None]
  - HYPOMAGNESAEMIA [None]
  - RENAL FAILURE ACUTE [None]
